FAERS Safety Report 4999465-6 (Version None)
Quarter: 2006Q2

REPORT INFORMATION
  Report Type: 
  Country: None (occurrence: None)
  Receive Date: 20060510
  Receipt Date: 20060510
  Transmission Date: 20061013
  Serious: Yes (Life-Threatening, Hospitalization)
  Sender: FDA-Public Use
  Company Number: None

PATIENT
  Age: 42 Year
  Sex: Female
  Weight: 114 kg

DRUGS (5)
  1. NORETHINDRONE AND ETHINYL ESTRADIOL [Suspect]
     Indication: UTERINE LEIOMYOMA
     Dosage: 0.4/0.035MG  PO  QD
     Route: 048
     Dates: start: 20060201, end: 20060225
  2. PREDNISONE TAB [Concomitant]
  3. FERROUS SULFATE TAB [Concomitant]
  4. CALCIUM GLUCONATE [Concomitant]
  5. PYRIDOSTIGMINE BROMIDE [Concomitant]

REACTIONS (7)
  - DEEP VEIN THROMBOSIS [None]
  - DYSPNOEA EXERTIONAL [None]
  - HYPERHIDROSIS [None]
  - METRORRHAGIA [None]
  - OEDEMA PERIPHERAL [None]
  - PAIN IN EXTREMITY [None]
  - PULMONARY EMBOLISM [None]
